FAERS Safety Report 5976038-X (Version None)
Quarter: 2008Q4

REPORT INFORMATION
  Report Type: 
  Country: None (occurrence: None)
  Receive Date: 20081202
  Receipt Date: 20081121
  Transmission Date: 20090506
  Serious: Yes (Hospitalization)
  Sender: FDA-Public Use
  Company Number: GB-ROCHE-598978

PATIENT
  Sex: Female
  Weight: 81.7 kg

DRUGS (4)
  1. ORLISTAT [Suspect]
     Indication: OBESITY
     Route: 048
     Dates: start: 20080327
  2. METFORMIN HCL [Concomitant]
     Route: 048
     Dates: start: 20060101
  3. PERINDOPRIL [Concomitant]
     Indication: HYPERTENSION
     Route: 048
     Dates: start: 20050101
  4. SIMVASTATIN [Concomitant]
     Route: 048
     Dates: start: 20060101

REACTIONS (1)
  - CHOLECYSTITIS [None]
